FAERS Safety Report 12561028 (Version 2)
Quarter: 2016Q3

REPORT INFORMATION
  Report Type: Report from Study
  Country: US (occurrence: US)
  Receive Date: 20160715
  Receipt Date: 20160826
  Transmission Date: 20161109
  Serious: Yes (Other)
  Sender: FDA-Public Use
  Company Number: PHEH2016US017429

PATIENT
  Sex: Male

DRUGS (1)
  1. ILARIS [Suspect]
     Active Substance: CANAKINUMAB
     Indication: PRODUCT USED FOR UNKNOWN INDICATION
     Dosage: 75 MG, EVERY 6 WEEKS
     Route: 058

REACTIONS (4)
  - Helicobacter infection [Unknown]
  - Fatigue [Unknown]
  - Decreased appetite [Unknown]
  - Injection site haemorrhage [Unknown]
